FAERS Safety Report 17572644 (Version 6)
Quarter: 2021Q1

REPORT INFORMATION
  Report Type: Spontaneous
  Country: JP (occurrence: JP)
  Receive Date: 20200323
  Receipt Date: 20210129
  Transmission Date: 20210419
  Serious: Yes (Hospitalization, Other)
  Sender: FDA-Public Use
  Company Number: JP-BRISTOL-MYERS SQUIBB COMPANY-BMS-2019-126530

PATIENT
  Age: 53 Year
  Sex: Male
  Weight: 90.6 kg

DRUGS (11)
  1. YERVOY [Suspect]
     Active Substance: IPILIMUMAB
     Indication: MALIGNANT MELANOMA
     Dosage: 250 MILLIGRAM
     Route: 041
     Dates: start: 20190117, end: 20190207
  2. BRAFTOVI [Suspect]
     Active Substance: ENCORAFENIB
     Indication: MALIGNANT MELANOMA
     Dosage: 450 MILLIGRAM, QD
     Route: 048
     Dates: start: 20190328, end: 20190420
  3. OPDIVO [Suspect]
     Active Substance: NIVOLUMAB
     Indication: MALIGNANT MELANOMA
     Dosage: 80 MILLIGRAM
     Route: 041
     Dates: start: 20190117, end: 20190207
  4. DENOTAS [Concomitant]
     Active Substance: CALCIUM CARBONATE\CHOLECALCIFEROL\MAGNESIUM CARBONATE
     Indication: PRODUCT USED FOR UNKNOWN INDICATION
     Dosage: 1 DOSAGE FORM, Q12H
     Route: 048
  5. NEXIUM SANDOZ [Concomitant]
     Indication: PRODUCT USED FOR UNKNOWN INDICATION
     Dosage: 20 MILLIGRAM, QD
     Route: 048
  6. MEKTOVI [Suspect]
     Active Substance: BINIMETINIB
     Dosage: UNK UNK, Q12H
     Route: 048
  7. BRAFTOVI [Suspect]
     Active Substance: ENCORAFENIB
     Dosage: UNK UNK, QD
     Route: 048
  8. CELECOX [Concomitant]
     Active Substance: CELECOXIB
     Indication: PRODUCT USED FOR UNKNOWN INDICATION
     Dosage: 100 MILLIGRAM, Q8H
     Route: 048
  9. MEKTOVI [Suspect]
     Active Substance: BINIMETINIB
     Indication: MALIGNANT MELANOMA
     Dosage: 45 MILLIGRAM, BID
     Route: 048
     Dates: start: 20190328, end: 20200420
  10. LOXOPROFEN [Concomitant]
     Active Substance: LOXOPROFEN
     Indication: PAIN
     Dosage: 60 MILLIGRAM, PRN
     Route: 048
  11. FEXOFENADINE HYDROCHLORIDE. [Concomitant]
     Active Substance: FEXOFENADINE HYDROCHLORIDE
     Indication: PRODUCT USED FOR UNKNOWN INDICATION
     Dosage: 60 MILLIGRAM, Q12H
     Route: 048

REACTIONS (7)
  - Interstitial lung disease [Recovered/Resolved]
  - Blood creatine phosphokinase increased [Recovered/Resolved]
  - Malignant neoplasm progression [Unknown]
  - Alanine aminotransferase increased [Recovered/Resolved]
  - Alopecia [Not Recovered/Not Resolved]
  - Aspartate aminotransferase increased [Recovered/Resolved]
  - Ascites [Unknown]

NARRATIVE: CASE EVENT DATE: 20190225
